FAERS Safety Report 16325179 (Version 1)
Quarter: 2019Q2

REPORT INFORMATION
  Report Type: Spontaneous
  Country: US (occurrence: US)
  Receive Date: 20190411
  Receipt Date: 20190411
  Transmission Date: 20190711
  Serious: Yes (Hospitalization)
  Sender: FDA-Public Use
  Company Number: None

PATIENT
  Age: 31 Year
  Sex: Female
  Weight: 54.4 kg

DRUGS (2)
  1. KEPPRA [Suspect]
     Active Substance: LEVETIRACETAM
  2. TRILEPTAL [Suspect]
     Active Substance: OXCARBAZEPINE
     Indication: HAEMOGLOBIN C DISEASE
     Route: 048

REACTIONS (2)
  - Platelet disorder [None]
  - Purpura [None]

NARRATIVE: CASE EVENT DATE: 20190410
